FAERS Safety Report 5162117-6 (Version None)
Quarter: 2006Q4

REPORT INFORMATION
  Report Type: 
  Country: None (occurrence: None)
  Receive Date: 20061121
  Receipt Date: 20061106
  Transmission Date: 20070319
  Serious: Yes (Death)
  Sender: FDA-Public Use
  Company Number: 6027143F

PATIENT
  Sex: Male

DRUGS (1)
  1. NIASPAN [Suspect]
     Dates: start: 20050925

REACTIONS (1)
  - DEATH [None]
